FAERS Safety Report 8957092 (Version 2)
Quarter: 2012Q4

REPORT INFORMATION
  Report Type: Report from Study
  Country: DE (occurrence: DE)
  Receive Date: 20121211
  Receipt Date: 20121226
  Transmission Date: 20130627
  Serious: Yes (Death, Other)
  Sender: FDA-Public Use
  Company Number: DE-ROCHE-1165474

PATIENT
  Age: 74 Year
  Sex: Male
  Weight: 67 kg

DRUGS (2)
  1. PEG-INTERFERON ALFA 2A [Suspect]
     Indication: HEPATITIS C
     Route: 065
     Dates: start: 20050526, end: 20060115
  2. RIBAVIRIN [Suspect]
     Indication: HEPATITIS C
     Route: 065
     Dates: start: 20050526, end: 20060115

REACTIONS (5)
  - Metastatic neoplasm [Fatal]
  - Hepatic failure [Unknown]
  - Ascites [Unknown]
  - Hepatic cirrhosis [Unknown]
  - Cardiac failure [Unknown]
